FAERS Safety Report 5861158-0 (Version None)
Quarter: 2008Q3

REPORT INFORMATION
  Report Type: 
  Country: None (occurrence: None)
  Receive Date: 20080827
  Receipt Date: 20080307
  Transmission Date: 20090109
  Serious: No
  Sender: FDA-Public Use
  Company Number: US-ABBOTT-08P-163-0441338-00

PATIENT
  Sex: Female

DRUGS (26)
  1. NIASPAN [Suspect]
     Indication: BLOOD CHOLESTEROL INCREASED
     Route: 048
     Dates: start: 20070201
  2. NIASPAN [Suspect]
     Route: 048
     Dates: start: 20060801, end: 20070201
  3. GROUND-FLAX SEED DIET CHANGE WITH WHOLE WHEAT FOR HIGH FIBER [Concomitant]
     Indication: MEDICAL DIET
     Route: 048
     Dates: start: 20080101
  4. CLOPIDOGREL [Concomitant]
     Indication: DRUG USE FOR UNKNOWN INDICATION
  5. DIMETICONE, ACTIVATED [Concomitant]
     Indication: DRUG USE FOR UNKNOWN INDICATION
  6. ACETAMINOPHEN [Concomitant]
     Indication: PAIN
  7. METOPROLOL SUCCINATE [Concomitant]
     Indication: DRUG USE FOR UNKNOWN INDICATION
  8. OLMESARTAN MEDOXOMIL [Concomitant]
     Indication: DRUG USE FOR UNKNOWN INDICATION
  9. EZETIMIBE [Concomitant]
     Indication: DRUG USE FOR UNKNOWN INDICATION
  10. POTASSIUM SUPPLEMENT [Concomitant]
     Indication: DRUG USE FOR UNKNOWN INDICATION
  11. FUROSEMIDE [Concomitant]
     Indication: DRUG USE FOR UNKNOWN INDICATION
  12. ACETYLSALICYLIC ACID SRT [Concomitant]
     Indication: DRUG USE FOR UNKNOWN INDICATION
  13. QUININE [Concomitant]
     Indication: DRUG USE FOR UNKNOWN INDICATION
  14. LORAZAPEM [Concomitant]
     Indication: DRUG USE FOR UNKNOWN INDICATION
  15. MECLIZINE [Concomitant]
     Indication: DRUG USE FOR UNKNOWN INDICATION
  16. HYDROCODONE BITARTRATE [Concomitant]
     Indication: DRUG USE FOR UNKNOWN INDICATION
  17. CIRRUS [Concomitant]
     Indication: HYPERSENSITIVITY
  18. TRIAMCINOLONE ACETONIDE [Concomitant]
     Indication: HYPERSENSITIVITY
  19. SALMETEROL XINAFOATE [Concomitant]
     Indication: HYPERSENSITIVITY
  20. CENTRUM SILVER [Concomitant]
     Indication: VITAMIN SUPPLEMENTATION
  21. CALCIUM AND MAGNESIUM + D [Concomitant]
     Indication: MINERAL SUPPLEMENTATION
  22. FISH OIL [Concomitant]
     Indication: DRUG USE FOR UNKNOWN INDICATION
  23. ASCORBIC ACID [Concomitant]
     Indication: VITAMIN SUPPLEMENTATION
  24. UBIDECARENONE [Concomitant]
     Indication: MINERAL SUPPLEMENTATION
  25. CHONDROITIN W/GLUCOSAMINE [Concomitant]
     Indication: MINERAL SUPPLEMENTATION
     Dosage: 400MG/500MG
  26. ERGOCALCIFEROL [Concomitant]
     Indication: VITAMIN SUPPLEMENTATION

REACTIONS (4)
  - DENTAL CARIES [None]
  - DRY SKIN [None]
  - NAIL DISORDER [None]
  - ONYCHOCLASIS [None]
